FAERS Safety Report 7270729-9 (Version None)
Quarter: 2011Q1

REPORT INFORMATION
  Report Type: 
  Country: None (occurrence: None)
  Receive Date: 20110202
  Receipt Date: 20110127
  Transmission Date: 20110831
  Serious: Yes (Hospitalization, Other)
  Sender: FDA-Public Use
  Company Number: B0697375A

PATIENT
  Age: 69 Year
  Sex: Male
  Weight: 105 kg

DRUGS (10)
  1. SOTALOL [Suspect]
     Route: 048
     Dates: start: 20101202, end: 20101220
  2. ACENOCOUMAROL [Concomitant]
     Route: 048
     Dates: start: 20081105
  3. TRIAMTERENE [Concomitant]
     Route: 048
     Dates: start: 20080718
  4. PERINDOPRIL [Concomitant]
     Route: 048
     Dates: start: 20080828
  5. EPLERENONE [Suspect]
     Indication: CARDIAC FAILURE
     Dosage: 25MG TWICE PER DAY
     Dates: start: 20101028, end: 20101220
  6. CLOPIDOGREL [Concomitant]
     Route: 048
     Dates: start: 20011221
  7. SIMVASTATIN [Concomitant]
     Route: 048
     Dates: start: 20020201
  8. LANOXIN [Suspect]
     Route: 048
     Dates: start: 20101210, end: 20101220
  9. AMLODIPINE [Concomitant]
     Route: 048
     Dates: start: 20100526
  10. FUROSEMIDE [Concomitant]
     Route: 048
     Dates: start: 20071210

REACTIONS (2)
  - RENAL FAILURE ACUTE [None]
  - BRADYCARDIA [None]
